FAERS Safety Report 9292187 (Version 2)
Quarter: 2013Q3

REPORT INFORMATION
  Report Type: Report from Study
  Country: CA (occurrence: CA)
  Receive Date: 20130516
  Receipt Date: 20130814
  Transmission Date: 20140515
  Serious: Yes (Other)
  Sender: FDA-Public Use
  Company Number: CA-JNJFOC-20130506210

PATIENT
  Sex: Male
  Weight: 74.2 kg

DRUGS (11)
  1. REMICADE [Suspect]
     Indication: CROHN^S DISEASE
     Dosage: 39TH INFUSION
     Route: 042
     Dates: start: 20130619
  2. REMICADE [Suspect]
     Indication: CROHN^S DISEASE
     Dosage: 37 TH INFUSION
     Route: 042
     Dates: start: 20130325
  3. REMICADE [Suspect]
     Indication: CROHN^S DISEASE
     Route: 042
     Dates: start: 20081202
  4. APO-DILTIAZ CD [Concomitant]
     Route: 065
  5. RAMIPRIL [Concomitant]
     Route: 065
  6. LIPITOR [Concomitant]
     Route: 065
  7. BABY ASPIRIN [Concomitant]
     Route: 065
  8. CENTRUM (MINERALS NOS, VITAMINS NOS) [Concomitant]
     Route: 065
  9. ATORVASTATIN [Concomitant]
     Route: 065
  10. VIT D [Concomitant]
     Route: 065
  11. NITRO [Concomitant]
     Route: 065

REACTIONS (5)
  - Skin cancer [Unknown]
  - Scleral discolouration [Unknown]
  - Dyspnoea [Recovering/Resolving]
  - Cough [Recovering/Resolving]
  - Eye swelling [Unknown]
